FAERS Safety Report 17191357 (Version 1)
Quarter: 2019Q4

REPORT INFORMATION
  Report Type: Spontaneous
  Country: SE (occurrence: SE)
  Receive Date: 20191223
  Receipt Date: 20191223
  Transmission Date: 20200122
  Serious: Yes (Hospitalization)
  Sender: FDA-Public Use
  Company Number: SE-TEVA-2019-SE-1155092

PATIENT
  Sex: Female

DRUGS (4)
  1. STESOLID [Suspect]
     Active Substance: DIAZEPAM
     Dosage: 150 MG
     Route: 048
     Dates: start: 20180920, end: 20180920
  2. PANOCOD [Suspect]
     Active Substance: ACETAMINOPHEN\CODEINE PHOSPHATE
     Dosage: ^4 ST, 2000 MG, CODEINE 120 GM ^
     Route: 048
     Dates: start: 20180920, end: 20180920
  3. IMOVANE [Suspect]
     Active Substance: ZOPICLONE
     Dosage: 20 ST, 150 MG
     Route: 048
     Dates: start: 20180920, end: 20180920
  4. PROPAVAN [Suspect]
     Active Substance: PROPIOMAZINE
     Dosage: 10 ST, 250 MG
     Route: 048
     Dates: start: 20180920, end: 20180920

REACTIONS (4)
  - Fatigue [Unknown]
  - Intentional self-injury [Unknown]
  - Intentional overdose [Unknown]
  - Depressed level of consciousness [Unknown]

NARRATIVE: CASE EVENT DATE: 20180920
